FAERS Safety Report 4688900-9 (Version None)
Quarter: 2005Q2

REPORT INFORMATION
  Report Type: 
  Country: None (occurrence: None)
  Receive Date: 20050608
  Receipt Date: 20050428
  Transmission Date: 20051028
  Serious: No
  Sender: FDA-Public Use
  Company Number: 2005-BP-07163BP

PATIENT
  Age: 77 Year
  Sex: Male

DRUGS (13)
  1. SPIRIVA [Suspect]
     Indication: ASBESTOSIS
     Dosage: 18 MCG (18 MCG), IH
     Route: 055
     Dates: start: 20050421
  2. SALMETEROL (SALMETEROL) [Suspect]
     Indication: CHRONIC OBSTRUCTIVE PULMONARY DISEASE
  3. DIGOXIN [Concomitant]
  4. LISINOPRIL [Concomitant]
  5. LITOPROLOL [Concomitant]
  6. GLIPIZIDE [Concomitant]
  7. ACIPHEX [Concomitant]
  8. OXYCODONE (OXYCODONE) [Concomitant]
  9. PLAVIX [Concomitant]
  10. LASIX [Concomitant]
  11. ZOCOR [Concomitant]
  12. TESTOSTERONE [Concomitant]
  13. DURAGESIC-100 [Concomitant]

REACTIONS (1)
  - INSOMNIA [None]
